FAERS Safety Report 15938415 (Version 1)
Quarter: 2019Q1

REPORT INFORMATION
  Report Type: Spontaneous
  Country: US (occurrence: US)
  Receive Date: 20190208
  Receipt Date: 20190208
  Transmission Date: 20190417
  Serious: No
  Sender: FDA-Public Use
  Company Number: US-ROCHE-2223065

PATIENT
  Age: 18 Year
  Sex: Male

DRUGS (6)
  1. SINGULAIR [Concomitant]
     Active Substance: MONTELUKAST SODIUM
  2. ZYRTEC [Concomitant]
     Active Substance: CETIRIZINE HYDROCHLORIDE
  3. ZANTAC [Concomitant]
     Active Substance: RANITIDINE HYDROCHLORIDE
  4. XOLAIR [Suspect]
     Active Substance: OMALIZUMAB
     Indication: PRODUCT USED FOR UNKNOWN INDICATION
     Route: 065
     Dates: start: 201809
  5. PREDNISONE. [Concomitant]
     Active Substance: PREDNISONE
  6. CLARITIN [Concomitant]
     Active Substance: LORATADINE

REACTIONS (10)
  - Eye swelling [Not Recovered/Not Resolved]
  - Urticaria [Unknown]
  - Pain of skin [Unknown]
  - Head discomfort [Unknown]
  - Lip swelling [Not Recovered/Not Resolved]
  - Dizziness [Unknown]
  - Arthralgia [Unknown]
  - Tension headache [Unknown]
  - Pruritus [Unknown]
  - Peripheral swelling [Not Recovered/Not Resolved]

NARRATIVE: CASE EVENT DATE: 20181105
